FAERS Safety Report 6251141-8 (Version None)
Quarter: 2009Q2

REPORT INFORMATION
  Report Type: 
  Country: None (occurrence: None)
  Receive Date: 20090630
  Receipt Date: 20090504
  Transmission Date: 20091009
  Serious: No
  Sender: FDA-Public Use
  Company Number: US-ABBOTT-09P-163-0571254-00

PATIENT
  Sex: Female

DRUGS (11)
  1. ZEMPLAR [Suspect]
     Indication: HYPERPARATHYROIDISM
     Dates: start: 20090302
  2. AMORIL [Concomitant]
     Indication: DRUG USE FOR UNKNOWN INDICATION
  3. LANTUS [Concomitant]
     Indication: DRUG USE FOR UNKNOWN INDICATION
  4. NOVULOG [Concomitant]
     Indication: DRUG USE FOR UNKNOWN INDICATION
  5. VITAMIN D [Concomitant]
     Indication: DRUG USE FOR UNKNOWN INDICATION
  6. NEXIUM [Concomitant]
     Indication: DRUG USE FOR UNKNOWN INDICATION
  7. ALLOPURINOL [Concomitant]
     Indication: DRUG USE FOR UNKNOWN INDICATION
  8. LASIX [Concomitant]
     Indication: DRUG USE FOR UNKNOWN INDICATION
  9. TRICOR [Concomitant]
     Indication: DRUG USE FOR UNKNOWN INDICATION
  10. VYTORIN [Concomitant]
     Indication: DRUG USE FOR UNKNOWN INDICATION
  11. BYSOLOAC [Concomitant]
     Indication: DRUG USE FOR UNKNOWN INDICATION

REACTIONS (1)
  - DRY MOUTH [None]
